FAERS Safety Report 4277135-X (Version None)
Quarter: 2004Q1

REPORT INFORMATION
  Report Type: 
  Country: None (occurrence: None)
  Receive Date: 20040120
  Receipt Date: 20031210
  Transmission Date: 20041129
  Serious: Yes (Hospitalization)
  Sender: FDA-Public Use
  Company Number: 6887

PATIENT
  Age: 68 Year
  Sex: Female

DRUGS (11)
  1. METHOTREXATE [Suspect]
     Indication: LYMPHOMA
     Dosage: 4410 MG PER_CYCLE
     Route: 042
     Dates: start: 20031031, end: 20031103
  2. TEICOPLANIN [Suspect]
     Indication: LUNG INFECTION
     Dosage: 400 MG BID/400 MG
     Route: 042
     Dates: start: 20031031, end: 20031101
  3. TEICOPLANIN [Suspect]
     Indication: LUNG INFECTION
     Dosage: 400 MG BID/400 MG
     Route: 042
     Dates: start: 20031102, end: 20031104
  4. CYCLOPHOSPHAMIDE [Concomitant]
  5. DOXORUBICIN [Concomitant]
  6. VINCRISTINE [Concomitant]
  7. CILASTATIN/IMIPENEM [Concomitant]
  8. DIGOXIN [Concomitant]
  9. ESOMEPRAZOLE [Concomitant]
  10. PREDNISONE [Concomitant]
  11. HEPARIN-FRACTION, CALCIUM SALT [Concomitant]

REACTIONS (5)
  - DRUG INTERACTION [None]
  - DRUG LEVEL INCREASED [None]
  - HAEMODIALYSIS [None]
  - NAUSEA [None]
  - RENAL FAILURE ACUTE [None]
